FAERS Safety Report 9112373 (Version 1)
Quarter: 2013Q1

REPORT INFORMATION
  Report Type: Spontaneous
  Country: US (occurrence: US)
  Receive Date: 20130219
  Receipt Date: 20130219
  Transmission Date: 20140127
  Serious: No
  Sender: FDA-Public Use
  Company Number: US-BRISTOL-MYERS SQUIBB COMPANY-16392235

PATIENT
  Age: 39 Year
  Sex: Female

DRUGS (1)
  1. ORENCIA FOR INJ [Suspect]
     Dosage: SWITCHED TO ORENCIA AND HAD 3 INJ. LAST INJ:3FEB12. NEXT: 10FEB12.
     Route: 042
     Dates: start: 201109

REACTIONS (2)
  - Swelling [Not Recovered/Not Resolved]
  - Skin ulcer [Unknown]
